FAERS Safety Report 6077037-2 (Version None)
Quarter: 2009Q1

REPORT INFORMATION
  Report Type: 
  Country: None (occurrence: None)
  Receive Date: 20090211
  Receipt Date: 20090121
  Transmission Date: 20090719
  Serious: Yes (Life-Threatening, Hospitalization, Other)
  Sender: FDA-Public Use
  Company Number: ADE2009-0434

PATIENT
  Age: 81 Year
  Sex: Female

DRUGS (6)
  1. MIRTAZAPINE [Suspect]
  2. HYDROCHLOROTHIAZIDE [Suspect]
  3. ESCITALOPRAM [Concomitant]
  4. DONEPEZIL HCL [Concomitant]
  5. RAMIPRIL [Concomitant]
  6. ALENDRONIC ACID [Concomitant]

REACTIONS (12)
  - ASTHENIA [None]
  - BLOOD CALCIUM DECREASED [None]
  - BLOOD CHLORIDE DECREASED [None]
  - BLOOD GLUCOSE INCREASED [None]
  - BLOOD OSMOLARITY INCREASED [None]
  - BLOOD PHOSPHORUS DECREASED [None]
  - BLOOD URIC ACID DECREASED [None]
  - CONFUSIONAL STATE [None]
  - FALL [None]
  - GLYCOSURIA [None]
  - HYPONATRAEMIA [None]
  - RENAL TUBULAR DISORDER [None]
